FAERS Safety Report 5584661-X (Version None)
Quarter: 2008Q1

REPORT INFORMATION
  Report Type: 
  Country: None (occurrence: None)
  Receive Date: 20080108
  Receipt Date: 20071229
  Transmission Date: 20080703
  Serious: Yes (Hospitalization, Other)
  Sender: FDA-Public Use
  Company Number: US-PFIZER INC-2007091321

PATIENT
  Sex: Male
  Weight: 93.4 kg

DRUGS (8)
  1. LIPITOR [Suspect]
     Indication: DYSLIPIDAEMIA
     Route: 048
  2. AVALIDE [Concomitant]
     Dosage: TEXT:300/25
  3. WARFARIN SODIUM [Concomitant]
  4. ISOSORBIDE DINITRATE [Concomitant]
  5. LEXAPRO [Concomitant]
  6. OXYCONTIN [Concomitant]
  7. SYNTHROID [Concomitant]
  8. DEMADEX [Concomitant]
     Dosage: DAILY DOSE:20MG

REACTIONS (4)
  - BLOOD CREATINE PHOSPHOKINASE INCREASED [None]
  - MENTAL STATUS CHANGES [None]
  - PAIN [None]
  - RHABDOMYOLYSIS [None]
